FAERS Safety Report 18328078 (Version 1)
Quarter: 2020Q3

REPORT INFORMATION
  Report Type: Spontaneous
  Country: NL (occurrence: NL)
  Receive Date: 20200930
  Receipt Date: 20200930
  Transmission Date: 20201103
  Serious: Yes (Hospitalization, Other)
  Sender: FDA-Public Use
  Company Number: NL-AUROBINDO-AUR-APL-2020-049853

PATIENT
  Sex: Female

DRUGS (1)
  1. DULOXETINE  GASTRO?RESISTANT CAPSULES, HARD 30MG [Suspect]
     Active Substance: DULOXETINE
     Indication: NEURALGIA
     Dosage: 30 MILLIGRAM, ONCE A DAY (1DD1)
     Route: 065
     Dates: start: 20200818, end: 20200819

REACTIONS (1)
  - Acute coronary syndrome [Recovered/Resolved]
